FAERS Safety Report 6801065-X (Version None)
Quarter: 2010Q2

REPORT INFORMATION
  Report Type: 
  Country: None (occurrence: None)
  Receive Date: 20100629
  Receipt Date: 20100618
  Transmission Date: 20101027
  Serious: Yes (Hospitalization)
  Sender: FDA-Public Use
  Company Number: US-JNJFOC-20100606709

PATIENT
  Sex: Female

DRUGS (8)
  1. REMICADE [Suspect]
     Indication: RHEUMATOID ARTHRITIS
     Route: 042
  2. SOLU-MEDROL [Concomitant]
     Indication: PREMEDICATION
     Route: 065
  3. BENADRYL [Concomitant]
     Indication: PREMEDICATION
     Route: 065
  4. TYLENOL [Concomitant]
     Indication: PREMEDICATION
     Route: 065
  5. HYDROCODONE [Concomitant]
     Indication: PAIN
     Route: 065
  6. METHOTREXATE [Concomitant]
     Indication: RHEUMATOID ARTHRITIS
     Route: 065
  7. ADVAIR DISKUS 100/50 [Concomitant]
     Indication: CHRONIC OBSTRUCTIVE PULMONARY DISEASE
     Route: 065
  8. ACTONEL [Concomitant]
     Route: 065

REACTIONS (2)
  - INFUSION RELATED REACTION [None]
  - MYOCARDIAL INFARCTION [None]
